FAERS Safety Report 25214391 (Version 1)
Quarter: 2025Q2

REPORT INFORMATION
  Report Type: Spontaneous
  Country: IR (occurrence: IR)
  Receive Date: 20250418
  Receipt Date: 20250418
  Transmission Date: 20250716
  Serious: Yes (Hospitalization, Other)
  Sender: Pangea Pharmaceuticals
  Company Number: IR-PANGEAPHARMA-2025PAN00004

PATIENT
  Age: 17 Year
  Sex: Male

DRUGS (2)
  1. DEXAMETHASONE [Suspect]
     Active Substance: DEXAMETHASONE
     Indication: Upper respiratory tract infection
     Route: 030
  2. NEUROBION [Suspect]
     Active Substance: CYANOCOBALAMIN\PYRIDOXINE\THIAMINE
     Indication: Fatigue

REACTIONS (2)
  - Paralysis [Recovered/Resolved]
  - Hypokalaemia [Recovered/Resolved]
